FAERS Safety Report 8805727 (Version 1)
Quarter: 2012Q4

REPORT INFORMATION
  Report Type: 
  Country: GB (occurrence: GB)
  Receive Date: 20120924
  Receipt Date: 20120924
  Transmission Date: 20130627
  Serious: Yes (Other)
  Sender: FDA-Public Use
  Company Number: GB-TEVA-358873ISR

PATIENT
  Age: 72 Year
  Sex: Female
  Weight: 73.47 kg

DRUGS (2)
  1. LEVOTHYROXINE [Suspect]
     Indication: HYPOTHYROIDISM
  2. LEVOTHYROXINE [Suspect]
     Indication: HYPOTHYROIDISM
     Route: 048
     Dates: start: 20120214, end: 20120220

REACTIONS (5)
  - Hypothyroidism [Not Recovered/Not Resolved]
  - Condition aggravated [Recovered/Resolved]
  - Gait disturbance [Recovered/Resolved]
  - Product substitution issue [Recovered/Resolved]
  - Dysstasia [Recovered/Resolved]
